FAERS Safety Report 20790067 (Version 2)
Quarter: 2022Q2

REPORT INFORMATION
  Report Type: Spontaneous
  Country: US (occurrence: None)
  Receive Date: 20220505
  Receipt Date: 20220616
  Transmission Date: 20220721
  Serious: Yes (Other)
  Sender: FDA-Public Use
  Company Number: 2022A166484

PATIENT
  Age: 26748 Day
  Sex: Female
  Weight: 47.6 kg

DRUGS (5)
  1. BEVESPI AEROSPHERE [Suspect]
     Active Substance: FORMOTEROL FUMARATE\GLYCOPYRROLATE
     Indication: Traumatic lung injury
     Dosage: 9MCG/4.8MCG PMDI, TWO TIMES A DAY
     Route: 055
     Dates: start: 202104
  2. BUDESONIDE\FORMOTEROL\GLYCOPYRRONIUM [Suspect]
     Active Substance: BUDESONIDE\FORMOTEROL\GLYCOPYRRONIUM
     Route: 055
  3. ATROVENT [Concomitant]
     Active Substance: IPRATROPIUM BROMIDE
     Route: 065
  4. DEXAMETHASONE [Concomitant]
     Active Substance: DEXAMETHASONE
     Route: 065
  5. OXYGEN [Concomitant]
     Active Substance: OXYGEN

REACTIONS (8)
  - Illness [Recovering/Resolving]
  - Dyspnoea [Recovering/Resolving]
  - Blood pressure abnormal [Recovering/Resolving]
  - Dependence [Recovering/Resolving]
  - Incorrect dose administered by device [Unknown]
  - Device use issue [Unknown]
  - Device use confusion [Unknown]
  - Device delivery system issue [Unknown]

NARRATIVE: CASE EVENT DATE: 20220426
